FAERS Safety Report 6183295-6 (Version None)
Quarter: 2009Q2

REPORT INFORMATION
  Report Type: 
  Country: None (occurrence: None)
  Receive Date: 20090507
  Receipt Date: 20090428
  Transmission Date: 20091009
  Serious: Yes (Hospitalization)
  Sender: FDA-Public Use
  Company Number: FR-WYE-H09237009

PATIENT
  Sex: Female

DRUGS (10)
  1. CORDARONE [Suspect]
     Indication: ATRIAL FIBRILLATION
     Route: 048
     Dates: end: 20090201
  2. TAHOR [Concomitant]
     Dosage: UNSPECIFIED
     Route: 048
  3. INIPOMP [Concomitant]
  4. FLAGYL [Concomitant]
  5. NITRODERM [Concomitant]
     Dosage: UNSPECIFIED
     Route: 062
  6. LEXOMIL [Concomitant]
     Dosage: UNSPECIFIED
     Route: 048
  7. SPASFON [Concomitant]
  8. DOLIPRANE [Concomitant]
  9. KARDEGIC [Concomitant]
  10. FORLAX [Concomitant]
     Dosage: UNSPECIFIED
     Route: 048

REACTIONS (2)
  - COMA [None]
  - HYPERTHYROIDISM [None]
